FAERS Safety Report 11249517 (Version 2)
Quarter: 2015Q3

REPORT INFORMATION
  Report Type: Spontaneous
  Country: US (occurrence: US)
  Receive Date: 20150708
  Receipt Date: 20150804
  Transmission Date: 20151125
  Serious: Yes (Other)
  Sender: FDA-Public Use
  Company Number: US-ELI_LILLY_AND_COMPANY-US201506010085

PATIENT
  Age: 74 Year

DRUGS (2)
  1. CYMBALTA [Suspect]
     Active Substance: DULOXETINE HYDROCHLORIDE
     Indication: BACK PAIN
     Dosage: 30 MG, QD
     Route: 065
     Dates: start: 2014
  2. CYMBALTA [Suspect]
     Active Substance: DULOXETINE HYDROCHLORIDE
     Indication: INAPPROPRIATE AFFECT
     Dosage: 30 MG, QOD
     Route: 065
     Dates: start: 201506

REACTIONS (12)
  - Glaucoma [Not Recovered/Not Resolved]
  - Back pain [Not Recovered/Not Resolved]
  - Fear [Not Recovered/Not Resolved]
  - Dizziness [Recovering/Resolving]
  - Drug withdrawal syndrome [Recovering/Resolving]
  - Off label use [Not Recovered/Not Resolved]
  - Disturbance in attention [Not Recovered/Not Resolved]
  - Visual field defect [Recovered/Resolved]
  - Headache [Recovering/Resolving]
  - Aggression [Not Recovered/Not Resolved]
  - Mood altered [Unknown]
  - Syncope [Recovered/Resolved]
